FAERS Safety Report 23238050 (Version 4)
Quarter: 2024Q2

REPORT INFORMATION
  Report Type: Report from Study
  Country: CA (occurrence: CA)
  Receive Date: 20231129
  Receipt Date: 20240408
  Transmission Date: 20240715
  Serious: Yes (Other)
  Sender: FDA-Public Use
  Company Number: CA-JNJFOC-20230727909

PATIENT
  Age: 46 Year
  Sex: Female
  Weight: 72 kg

DRUGS (5)
  1. REMICADE [Suspect]
     Active Substance: INFLIXIMAB
     Indication: Crohn^s disease
     Dosage: EXPIRY; 30-APR-2026
     Route: 041
  2. REMICADE [Suspect]
     Active Substance: INFLIXIMAB
     Route: 041
  3. RENFLEXIS [Concomitant]
     Active Substance: INFLIXIMAB-ABDA
  4. MAXALT [Concomitant]
     Active Substance: RIZATRIPTAN BENZOATE
  5. METOCLOPRAMIDE [Concomitant]
     Active Substance: METOCLOPRAMIDE
     Indication: Product used for unknown indication
     Route: 065

REACTIONS (8)
  - Haematochezia [Unknown]
  - Blood pressure decreased [Unknown]
  - Seizure [Recovering/Resolving]
  - Oral candidiasis [Not Recovered/Not Resolved]
  - Urinary tract infection [Recovered/Resolved]
  - Sleep apnoea syndrome [Unknown]
  - Dyspnoea [Unknown]
  - Migraine [Recovering/Resolving]

NARRATIVE: CASE EVENT DATE: 20231016
